FAERS Safety Report 9994870 (Version 1)
Quarter: 2014Q1

REPORT INFORMATION
  Report Type: Spontaneous
  Country: IT (occurrence: IT)
  Receive Date: 20140311
  Receipt Date: 20140311
  Transmission Date: 20141002
  Serious: Yes (Hospitalization)
  Sender: FDA-Public Use
  Company Number: IT-JNJFOC-20140304010

PATIENT
  Age: 78 Year
  Sex: Female
  Weight: 69.84 kg

DRUGS (2)
  1. RIVAROXABAN [Suspect]
     Indication: EMBOLISM VENOUS
     Route: 048
     Dates: start: 20140131, end: 20140220
  2. RIVAROXABAN [Suspect]
     Indication: DEEP VEIN THROMBOSIS
     Route: 048
     Dates: start: 20140131, end: 20140220

REACTIONS (2)
  - Hepatitis acute [Recovering/Resolving]
  - Transaminases increased [Recovering/Resolving]
